FAERS Safety Report 24199078 (Version 2)
Quarter: 2024Q3

REPORT INFORMATION
  Report Type: Report from Study
  Country: BR (occurrence: BR)
  Receive Date: 20240812
  Receipt Date: 20240827
  Transmission Date: 20241016
  Serious: Yes (Other)
  Sender: JOHNSON AND JOHNSON
  Company Number: BR-JNJFOC-20240820506

PATIENT
  Age: 12 Year
  Sex: Female
  Weight: 29 kg

DRUGS (4)
  1. INFLIXIMAB [Suspect]
     Active Substance: INFLIXIMAB
     Indication: Crohn^s disease
     Route: 041
  2. INFLIXIMAB [Suspect]
     Active Substance: INFLIXIMAB
     Route: 041
  3. INFLIXIMAB [Suspect]
     Active Substance: INFLIXIMAB
     Indication: Crohn^s disease
     Route: 041
  4. INFLIXIMAB [Suspect]
     Active Substance: INFLIXIMAB
     Route: 041

REACTIONS (3)
  - Crohn^s disease [Unknown]
  - Weight increased [Unknown]
  - Off label use [Unknown]
